FAERS Safety Report 12545240 (Version 1)
Quarter: 2016Q3

REPORT INFORMATION
  Report Type: Spontaneous
  Country: US (occurrence: US)
  Receive Date: 20160711
  Receipt Date: 20160711
  Transmission Date: 20161109
  Serious: No
  Sender: FDA-Public Use
  Company Number: US-DSJP-DSU-2016-115241

PATIENT

DRUGS (1)
  1. BENICAR HCT [Suspect]
     Active Substance: HYDROCHLOROTHIAZIDE\OLMESARTAN MEDOXOMIL
     Indication: PRODUCT USED FOR UNKNOWN INDICATION
     Dosage: UNK
     Dates: start: 2004

REACTIONS (6)
  - Functional gastrointestinal disorder [Unknown]
  - Gastrointestinal infection [Unknown]
  - Malabsorption [Unknown]
  - Gastrointestinal injury [Unknown]
  - Diverticulitis [Unknown]
  - Anorectal discomfort [Unknown]
